FAERS Safety Report 24770910 (Version 4)
Quarter: 2025Q4

REPORT INFORMATION
  Report Type: Spontaneous
  Country: EU (occurrence: EU)
  Receive Date: 20241224
  Receipt Date: 20251231
  Transmission Date: 20260118
  Serious: Yes (Other)
  Sender: MSN LABORATORIES PRIVATE LIMITED
  Company Number: None

PATIENT

DRUGS (18)
  1. CAPECITABINE [Suspect]
     Active Substance: CAPECITABINE
     Indication: Disease progression
     Route: 048
  2. CAPECITABINE [Suspect]
     Active Substance: CAPECITABINE
     Indication: Breast cancer
  3. PACLITAXEL [Suspect]
     Active Substance: PACLITAXEL
     Indication: Breast cancer
     Dosage: 12X90 MILLIGRAM/SQ. METER
     Route: 065
     Dates: start: 2012
  4. CYCLOPHOSPHAMIDE [Suspect]
     Active Substance: CYCLOPHOSPHAMIDE
     Indication: Breast cancer
     Dosage: 600 MILLIGRAM/SQ. METER
     Route: 065
     Dates: start: 2012
  5. DOCETAXEL [Suspect]
     Active Substance: DOCETAXEL
     Indication: Invasive ductal breast carcinoma
     Route: 065
     Dates: start: 2019
  6. DOCETAXEL [Suspect]
     Active Substance: DOCETAXEL
     Indication: Breast cancer
  7. DOXORUBICIN HYDROCHLORIDE [Suspect]
     Active Substance: DOXORUBICIN HYDROCHLORIDE
     Indication: Breast cancer
     Dosage: 60 MILLIGRAM/SQ. METER
     Route: 065
     Dates: start: 2012
  8. GOSERELIN [Suspect]
     Active Substance: GOSERELIN
     Indication: Breast cancer
     Route: 065
     Dates: start: 2012
  9. LAPATINIB [Suspect]
     Active Substance: LAPATINIB
     Indication: Disease progression
     Route: 065
  10. LETROZOLE [Suspect]
     Active Substance: LETROZOLE
     Indication: Breast cancer
     Route: 065
     Dates: start: 2012
  11. PERTUZUMAB [Suspect]
     Active Substance: PERTUZUMAB
     Indication: Invasive ductal breast carcinoma
     Route: 065
     Dates: start: 2019
  12. PERTUZUMAB [Suspect]
     Active Substance: PERTUZUMAB
     Indication: Breast cancer
  13. TAMOXIFEN [Suspect]
     Active Substance: TAMOXIFEN
     Indication: Breast cancer
     Dosage: PLANNED FOR ANOTHER FIVE YEARS
     Route: 065
  14. TRASTUZUMAB [Suspect]
     Active Substance: TRASTUZUMAB
     Indication: Breast cancer
     Dosage: 600 MILLIGRAM, EVERY 21 DAYS
     Route: 058
     Dates: start: 2012
  15. TRASTUZUMAB [Suspect]
     Active Substance: TRASTUZUMAB
     Indication: Invasive ductal breast carcinoma
     Dosage: TRASTUZUMAB AND PERTUZUMA [COMBI] WITH DOCETAXEL
     Route: 065
     Dates: start: 2019
  16. TRASTUZUMAB [Suspect]
     Active Substance: TRASTUZUMAB
     Indication: Breast cancer
  17. XELODA [Suspect]
     Active Substance: CAPECITABINE
     Indication: Breast cancer
     Route: 048
  18. TRASTUZUMAB DERUXTECAN [Concomitant]
     Active Substance: TRASTUZUMAB DERUXTECAN
     Route: 065
     Dates: start: 202112

REACTIONS (9)
  - Biliary colic [Unknown]
  - Treatment failure [Unknown]
  - Pain [Unknown]
  - Therapeutic product effect incomplete [Unknown]
  - Dyspnoea [Unknown]
  - Disease progression [Unknown]
  - Drug ineffective [Recovered/Resolved]
  - Off label use [Unknown]
  - Intentional product use issue [Unknown]

NARRATIVE: CASE EVENT DATE: 20120101
